FAERS Safety Report 21224276 (Version 1)
Quarter: 2022Q3

REPORT INFORMATION
  Report Type: Report from Study
  Country: AT (occurrence: AT)
  Receive Date: 20220817
  Receipt Date: 20220817
  Transmission Date: 20221027
  Serious: Yes (Hospitalization, Other)
  Sender: FDA-Public Use
  Company Number: AT-TAKEDA-2022TUS056550

PATIENT
  Sex: Male

DRUGS (5)
  1. IDURSULFASE [Suspect]
     Active Substance: IDURSULFASE
     Indication: Mucopolysaccharidosis II
     Dosage: 0.5 MILLIGRAM/KILOGRAM, 1/WEEK
     Route: 042
     Dates: start: 20111025, end: 20120606
  2. IDURSULFASE [Suspect]
     Active Substance: IDURSULFASE
     Dosage: 0.8 MILLIGRAM/KILOGRAM, Q2WEEKS
     Route: 042
     Dates: start: 20120613
  3. AMOXICILLIN\CLAVULANATE POTASSIUM [Concomitant]
     Active Substance: AMOXICILLIN\CLAVULANATE POTASSIUM
     Indication: Otitis media
     Dosage: UNK
     Route: 048
     Dates: start: 20120502, end: 20120509
  4. CECLOR [Concomitant]
     Active Substance: CEFACLOR
     Indication: Bacterial infection
     Dosage: UNK
     Route: 048
     Dates: start: 2013, end: 20130706
  5. AMBROXOL HYDROCHLORIDE [Concomitant]
     Active Substance: AMBROXOL HYDROCHLORIDE
     Indication: Respiratory tract infection viral
     Dosage: UNK
     Route: 048
     Dates: start: 20141124, end: 20141129

REACTIONS (1)
  - Epilepsy [Recovered/Resolved]

NARRATIVE: CASE EVENT DATE: 20220515
